FAERS Safety Report 8362505 (Version 2)
Quarter: 2015Q1

REPORT INFORMATION
  Report Type: Report from Study
  Country: US (occurrence: US)
  Receive Date: 20120130
  Receipt Date: 20150226
  Transmission Date: 20150721
  Serious: Yes (Death, Other)
  Sender: FDA-Public Use
  Company Number: US-ROCHE-1034559

PATIENT
  Sex: Female

DRUGS (14)
  1. NYSTATIN. [Concomitant]
     Active Substance: NYSTATIN
  2. PEPCID [Concomitant]
     Active Substance: FAMOTIDINE
  3. TYLENOL [Concomitant]
     Active Substance: ACETAMINOPHEN
     Route: 048
  4. PROCRIT [Concomitant]
     Active Substance: ERYTHROPOIETIN
     Route: 065
  5. SUTENT [Concomitant]
     Active Substance: SUNITINIB MALATE
     Route: 065
     Dates: start: 200704
  6. PREDNISONE. [Concomitant]
     Active Substance: PREDNISONE
     Route: 065
  7. EPOGEN [Concomitant]
     Active Substance: ERYTHROPOIETIN
  8. AVASTIN [Suspect]
     Active Substance: BEVACIZUMAB
     Route: 042
  9. MORPHINE [Concomitant]
     Active Substance: MORPHINE
     Route: 065
  10. BENADRYL [Concomitant]
     Active Substance: DIPHENHYDRAMINE HYDROCHLORIDE
     Route: 048
  11. AVASTIN [Suspect]
     Active Substance: BEVACIZUMAB
     Indication: MALIGNANT URINARY TRACT NEOPLASM
     Route: 042
  12. CISPLATIN. [Concomitant]
     Active Substance: CISPLATIN
  13. AVASTIN [Suspect]
     Active Substance: BEVACIZUMAB
     Indication: RENAL CANCER
     Route: 042
     Dates: start: 20070405
  14. COLACE [Concomitant]
     Active Substance: DOCUSATE SODIUM

REACTIONS (12)
  - Haemolytic anaemia [Recovered/Resolved]
  - Epistaxis [Unknown]
  - Oedema peripheral [Unknown]
  - Stomatitis [Unknown]
  - Oral candidiasis [Recovered/Resolved]
  - Asthenia [Unknown]
  - Death [Fatal]
  - Breath sounds abnormal [Unknown]
  - Dyspnoea [Unknown]
  - Hypertension [Unknown]
  - Thrombocytopenia [Recovered/Resolved]
  - Fatigue [Unknown]
